FAERS Safety Report 6570630-X (Version None)
Quarter: 2010Q1

REPORT INFORMATION
  Report Type: 
  Country: None (occurrence: None)
  Receive Date: 20100204
  Receipt Date: 20100126
  Transmission Date: 20100710
  Serious: Yes (Life-Threatening)
  Sender: FDA-Public Use
  Company Number: FR-PFIZER INC-2010010070

PATIENT
  Age: 56 Year
  Sex: Male

DRUGS (8)
  1. ZOLOFT [Suspect]
     Indication: DEPRESSION
     Dosage: UNK
     Dates: start: 20090423, end: 20090923
  2. CLOPIXOL (DECANOATE) [Suspect]
     Indication: SCHIZOPHRENIA
     Dosage: UNK
     Dates: start: 20060901, end: 20090923
  3. DEPAKOTE [Suspect]
     Dosage: UNK
     Dates: start: 20061204
  4. TERALITHE [Suspect]
     Dosage: UNK
     Dates: start: 19981107, end: 20090923
  5. TERCIAN [Suspect]
     Indication: SCHIZOPHRENIA
     Dosage: UNK
     Dates: start: 19970320, end: 20090920
  6. TERCIAN [Suspect]
     Dosage: UNK
     Dates: start: 20090920, end: 20090923
  7. PARKINANE [Suspect]
     Indication: PARKINSON'S DISEASE
     Dosage: UNK
     Route: 048
     Dates: start: 19960416
  8. SERESTA [Suspect]
     Indication: ANXIETY
     Dosage: UNK
     Route: 048
     Dates: end: 20090923

REACTIONS (4)
  - CONFUSIONAL STATE [None]
  - HYPERTHERMIA [None]
  - HYPOREFLEXIA [None]
  - MUSCLE RIGIDITY [None]
